FAERS Safety Report 9282713 (Version 2)
Quarter: 2014Q2

REPORT INFORMATION
  Report Type: Spontaneous
  Country: IT (occurrence: IT)
  Receive Date: 20130510
  Receipt Date: 20140404
  Transmission Date: 20141212
  Serious: Yes (Hospitalization)
  Sender: FDA-Public Use
  Company Number: IT-BRISTOL-MYERS SQUIBB COMPANY-18851667

PATIENT
  Age: 87 Year
  Sex: Female

DRUGS (6)
  1. COUMADIN TABS 5 MG [Suspect]
     Indication: ATRIAL FIBRILLATION
     Route: 048
     Dates: start: 20120421, end: 20120505
  2. CORDARONE [Concomitant]
     Dosage: 200MG TABS
     Route: 048
     Dates: start: 20120421, end: 20120505
  3. CARDIOASPIRIN [Concomitant]
     Dosage: TABS
     Route: 048
  4. CARDURA [Concomitant]
     Dosage: TABS
     Route: 048
  5. TORVAST [Concomitant]
     Dosage: TABS
     Route: 048
  6. COVERSYL [Concomitant]
     Dosage: TABS
     Route: 048

REACTIONS (2)
  - Cerebral haemorrhage [Recovering/Resolving]
  - Glioblastoma [Recovering/Resolving]
